FAERS Safety Report 21446502 (Version 1)
Quarter: 2022Q4

REPORT INFORMATION
  Report Type: Spontaneous
  Country: US (occurrence: None)
  Receive Date: 20221012
  Receipt Date: 20221012
  Transmission Date: 20230113
  Serious: Yes (Life-Threatening, Hospitalization, Disabling, Other)
  Sender: FDA-Public Use
  Company Number: None

PATIENT
  Sex: Female

DRUGS (1)
  1. ALENDRONATE [Suspect]
     Active Substance: ALENDRONATE SODIUM
     Indication: Osteopenia

REACTIONS (8)
  - Fall [None]
  - Femur fracture [None]
  - Physical disability [None]
  - Loss of personal independence in daily activities [None]
  - Economic problem [None]
  - Impaired quality of life [None]
  - Impaired healing [None]
  - Walking aid user [None]

NARRATIVE: CASE EVENT DATE: 20211114
